FAERS Safety Report 8275229-5 (Version None)
Quarter: 2012Q2

REPORT INFORMATION
  Report Type: 
  Country: None (occurrence: None)
  Receive Date: 20120411
  Receipt Date: 20120402
  Transmission Date: 20120825
  Serious: Yes (Hospitalization)
  Sender: FDA-Public Use
  Company Number: IT-BAYER-2011-122957

PATIENT
  Age: 78 Year
  Sex: Male

DRUGS (5)
  1. HYDROCHLOROTHIAZIDE W/ OLMESARTAN MEDOXOMIL [Concomitant]
     Indication: HYPERTENSION
     Dosage: DAILY DOSE 20 MG
     Route: 048
     Dates: start: 20011201, end: 20111205
  2. OXCARBAZEPINE [Concomitant]
     Indication: EPILEPSY
     Dosage: DAILY DOSE 600 MG
     Route: 048
     Dates: start: 20081201, end: 20111205
  3. KETOPROFEN [Suspect]
     Indication: BACK PAIN
     Dosage: DAILY DOSE 160 MG
     Route: 048
     Dates: start: 20111201, end: 20111203
  4. ASPIRIN [Suspect]
     Indication: PLATELET AGGREGATION INHIBITION
     Dosage: 100 MG, QD
     Route: 048
     Dates: start: 19961201, end: 20111205
  5. AVODART [Concomitant]
     Indication: BENIGN PROSTATIC HYPERPLASIA
     Dosage: DAILY DOSE .5 MG
     Route: 048
     Dates: start: 20011201, end: 20111205

REACTIONS (2)
  - DUODENAL ULCER HAEMORRHAGE [None]
  - MELAENA [None]
